FAERS Safety Report 25554502 (Version 1)
Quarter: 2025Q3

REPORT INFORMATION
  Report Type: Spontaneous
  Country: US (occurrence: US)
  Receive Date: 20250715
  Receipt Date: 20250715
  Transmission Date: 20251021
  Serious: No
  Sender: GLENMARK
  Company Number: US-GLENMARK PHARMACEUTICALS-2024GMK092747

PATIENT

DRUGS (1)
  1. MOMETASONE FUROATE [Suspect]
     Active Substance: MOMETASONE FUROATE
     Indication: Product used for unknown indication
     Dosage: UNK, QD (DAILY FOR A YEAR)
     Route: 065

REACTIONS (3)
  - Papule [Unknown]
  - Erythema [Unknown]
  - Product communication issue [Unknown]
